FAERS Safety Report 8581132-3 (Version None)
Quarter: 2012Q3

REPORT INFORMATION
  Report Type: 
  Country: None (occurrence: None)
  Receive Date: 20120809
  Receipt Date: 20120731
  Transmission Date: 20120928
  Serious: Yes (Hospitalization)
  Sender: FDA-Public Use
  Company Number: AU-CELGENEUS-008-21660-12071540

PATIENT
  Sex: Female
  Weight: 70 kg

DRUGS (14)
  1. GEMCITABINE HYDROCHLORIDE [Suspect]
     Route: 065
     Dates: start: 20120712
  2. ABRAXANE [Suspect]
     Route: 065
     Dates: start: 20120712
  3. ZOLOFT [Concomitant]
     Dosage: 10 MILLIGRAM
     Route: 048
     Dates: start: 19980101
  4. FEXOFENADINE [Concomitant]
     Indication: PROPHYLAXIS
     Dosage: 180 MILLIGRAM
     Route: 048
     Dates: start: 20120607
  5. HALOPERIDOL [Concomitant]
     Indication: PROPHYLAXIS
     Dosage: 10 MILLIGRAM
     Route: 048
     Dates: start: 20120728
  6. GEMCITABINE HYDROCHLORIDE [Suspect]
     Route: 065
     Dates: start: 20120705
  7. ZOLOFT [Concomitant]
     Dosage: 100 MILLIGRAM
     Route: 048
     Dates: start: 20120728
  8. QUIT NICOTINE [Concomitant]
     Dosage: 21 MILLIGRAM
     Route: 062
     Dates: start: 20120301, end: 20120713
  9. METFORMIN HYDROCHLORIDE [Concomitant]
     Dosage: 500 MILLIGRAM
     Route: 048
     Dates: start: 20120301
  10. OXYCODONE HCL [Concomitant]
     Dosage: 15 MILLIGRAM
     Route: 048
     Dates: start: 20120623
  11. GRANISETRON [Concomitant]
     Indication: PROPHYLAXIS
     Route: 048
     Dates: start: 20120705
  12. ABRAXANE [Suspect]
     Dates: start: 20120705
  13. IRBESARTAN [Concomitant]
     Dosage: 75 MILLIGRAM
     Route: 048
     Dates: start: 20120301
  14. ACETAMINOPHEN [Concomitant]
     Dosage: 3000 MILLIGRAM
     Route: 048
     Dates: start: 20120623

REACTIONS (2)
  - PLEURITIC PAIN [None]
  - CHOLANGITIS [None]
